FAERS Safety Report 23245477 (Version 1)
Quarter: 2023Q4

REPORT INFORMATION
  Report Type: Spontaneous
  Country: GB (occurrence: None)
  Receive Date: 20231130
  Receipt Date: 20231130
  Transmission Date: 20240110
  Serious: Yes (Other)
  Sender: FDA-Public Use
  Company Number: None

PATIENT
  Age: 84 Year
  Sex: Female

DRUGS (1)
  1. VABYSMO [Suspect]
     Active Substance: FARICIMAB\FARICIMAB-SVOA
     Indication: Neovascular age-related macular degeneration
     Dosage: 6MG; ;
     Route: 065
     Dates: start: 20230426, end: 20231012

REACTIONS (3)
  - Keratic precipitates [Recovering/Resolving]
  - Intraocular pressure increased [Recovering/Resolving]
  - Anterior chamber cell [Recovering/Resolving]

NARRATIVE: CASE EVENT DATE: 20231118
